FAERS Safety Report 26025856 (Version 2)
Quarter: 2025Q4

REPORT INFORMATION
  Report Type: Report from Study
  Country: US (occurrence: US)
  Receive Date: 20251111
  Receipt Date: 20251221
  Transmission Date: 20260118
  Serious: Yes (Life-Threatening, Hospitalization)
  Sender: MYLAN
  Company Number: US-MYLANLABS-2025M1085744

PATIENT
  Age: 67 Year
  Sex: Male

DRUGS (108)
  1. NORVASC [Suspect]
     Active Substance: AMLODIPINE BESYLATE
     Indication: Essential hypertension
     Dosage: 5 MILLIGRAM, QD (ONCE A DAY)
     Route: 061
     Dates: start: 20210409, end: 20250806
  2. NORVASC [Suspect]
     Active Substance: AMLODIPINE BESYLATE
     Dosage: 5 MILLIGRAM, QD (ONCE A DAY)
     Route: 061
     Dates: start: 20210409, end: 20250806
  3. NORVASC [Suspect]
     Active Substance: AMLODIPINE BESYLATE
     Dosage: 5 MILLIGRAM, QD (ONCE A DAY)
     Route: 048
     Dates: start: 20210409, end: 20250806
  4. NORVASC [Suspect]
     Active Substance: AMLODIPINE BESYLATE
     Dosage: 5 MILLIGRAM, QD (ONCE A DAY)
     Route: 048
     Dates: start: 20210409, end: 20250806
  5. NORVASC [Suspect]
     Active Substance: AMLODIPINE BESYLATE
     Dosage: 2.5 MILLIGRAM
  6. NORVASC [Suspect]
     Active Substance: AMLODIPINE BESYLATE
     Dosage: 2.5 MILLIGRAM
  7. NORVASC [Suspect]
     Active Substance: AMLODIPINE BESYLATE
     Dosage: 2.5 MILLIGRAM
     Route: 065
  8. NORVASC [Suspect]
     Active Substance: AMLODIPINE BESYLATE
     Dosage: 2.5 MILLIGRAM
     Route: 065
  9. TAMSULOSIN [Suspect]
     Active Substance: TAMSULOSIN
     Indication: Erectile dysfunction
     Dosage: 0.4 MILLIGRAM, QD (DAILY)
     Route: 061
     Dates: start: 20220810
  10. TAMSULOSIN [Suspect]
     Active Substance: TAMSULOSIN
     Dosage: 0.4 MILLIGRAM, QD (DAILY)
     Route: 048
     Dates: start: 20220810
  11. TAMSULOSIN [Suspect]
     Active Substance: TAMSULOSIN
     Dosage: 0.4 MILLIGRAM, QD (DAILY)
     Route: 048
     Dates: start: 20220810
  12. TAMSULOSIN [Suspect]
     Active Substance: TAMSULOSIN
     Dosage: 0.4 MILLIGRAM, QD (DAILY)
     Route: 061
     Dates: start: 20220810
  13. ISOSORBIDE MONONITRATE [Suspect]
     Active Substance: ISOSORBIDE MONONITRATE
     Indication: Angina pectoris
     Dosage: 120 MILLIGRAM, QD (ONCE A DAY)
     Route: 061
     Dates: start: 20220112, end: 20250807
  14. ISOSORBIDE MONONITRATE [Suspect]
     Active Substance: ISOSORBIDE MONONITRATE
     Indication: Erectile dysfunction
     Dosage: 120 MILLIGRAM, QD (ONCE A DAY)
     Route: 048
     Dates: start: 20220112, end: 20250807
  15. ISOSORBIDE MONONITRATE [Suspect]
     Active Substance: ISOSORBIDE MONONITRATE
     Dosage: 120 MILLIGRAM, QD (ONCE A DAY)
     Route: 048
     Dates: start: 20220112, end: 20250807
  16. ISOSORBIDE MONONITRATE [Suspect]
     Active Substance: ISOSORBIDE MONONITRATE
     Dosage: 120 MILLIGRAM, QD (ONCE A DAY)
     Route: 061
     Dates: start: 20220112, end: 20250807
  17. ALBUTEROL [Concomitant]
     Active Substance: ALBUTEROL
     Indication: Asthma
     Dosage: 90 MICROGRAM, PRN (AS NEEDED)
  18. ALBUTEROL [Concomitant]
     Active Substance: ALBUTEROL
     Dosage: 90 MICROGRAM, PRN (AS NEEDED)
     Route: 055
  19. ALBUTEROL [Concomitant]
     Active Substance: ALBUTEROL
     Dosage: 90 MICROGRAM, PRN (AS NEEDED)
     Route: 055
  20. ALBUTEROL [Concomitant]
     Active Substance: ALBUTEROL
     Dosage: 90 MICROGRAM, PRN (AS NEEDED)
  21. ASPIRIN [Concomitant]
     Active Substance: ASPIRIN
     Indication: Coronary artery disease
     Dosage: 81 MILLIGRAM, QD (ONCE DAILY)
     Route: 061
     Dates: start: 2020
  22. ASPIRIN [Concomitant]
     Active Substance: ASPIRIN
     Dosage: 81 MILLIGRAM, QD (ONCE DAILY)
     Route: 048
     Dates: start: 2020
  23. ASPIRIN [Concomitant]
     Active Substance: ASPIRIN
     Dosage: 81 MILLIGRAM, QD (ONCE DAILY)
     Route: 048
     Dates: start: 2020
  24. ASPIRIN [Concomitant]
     Active Substance: ASPIRIN
     Dosage: 81 MILLIGRAM, QD (ONCE DAILY)
     Route: 061
     Dates: start: 2020
  25. BACLOFEN [Concomitant]
     Active Substance: BACLOFEN
     Indication: Intervertebral disc degeneration
     Dosage: 5 MILLIGRAM, BID (TWICE DAILY)
     Route: 061
     Dates: start: 2022
  26. BACLOFEN [Concomitant]
     Active Substance: BACLOFEN
     Dosage: 5 MILLIGRAM, BID (TWICE DAILY)
     Route: 048
     Dates: start: 2022
  27. BACLOFEN [Concomitant]
     Active Substance: BACLOFEN
     Dosage: 5 MILLIGRAM, BID (TWICE DAILY)
     Route: 048
     Dates: start: 2022
  28. BACLOFEN [Concomitant]
     Active Substance: BACLOFEN
     Dosage: 5 MILLIGRAM, BID (TWICE DAILY)
     Route: 061
     Dates: start: 2022
  29. EZETIMIBE [Concomitant]
     Active Substance: EZETIMIBE
     Indication: Hyperlipidaemia
     Dosage: 10 MILLIGRAM, QD (1 EVERY 1 DAYS)
     Route: 061
     Dates: start: 20210409
  30. EZETIMIBE [Concomitant]
     Active Substance: EZETIMIBE
     Dosage: 10 MILLIGRAM, QD (1 EVERY 1 DAYS)
     Route: 048
     Dates: start: 20210409
  31. EZETIMIBE [Concomitant]
     Active Substance: EZETIMIBE
     Dosage: 10 MILLIGRAM, QD (1 EVERY 1 DAYS)
     Route: 048
     Dates: start: 20210409
  32. EZETIMIBE [Concomitant]
     Active Substance: EZETIMIBE
     Dosage: 10 MILLIGRAM, QD (1 EVERY 1 DAYS)
     Route: 061
     Dates: start: 20210409
  33. FOLIC ACID [Concomitant]
     Active Substance: FOLIC ACID
     Indication: Coronary artery disease
     Dosage: 1 MILLIGRAM, QD (PER DAY)
     Route: 061
     Dates: start: 20220819
  34. FOLIC ACID [Concomitant]
     Active Substance: FOLIC ACID
     Dosage: 1 MILLIGRAM, QD (PER DAY)
     Route: 048
     Dates: start: 20220819
  35. FOLIC ACID [Concomitant]
     Active Substance: FOLIC ACID
     Dosage: 1 MILLIGRAM, QD (PER DAY)
     Route: 048
     Dates: start: 20220819
  36. FOLIC ACID [Concomitant]
     Active Substance: FOLIC ACID
     Dosage: 1 MILLIGRAM, QD (PER DAY)
     Route: 061
     Dates: start: 20220819
  37. GABAPENTIN [Concomitant]
     Active Substance: GABAPENTIN
     Indication: Carpal tunnel syndrome
     Dosage: 100 MILLIGRAM, QD (1 EVERY 1 DAYS)
     Route: 061
     Dates: start: 20240826, end: 20250728
  38. GABAPENTIN [Concomitant]
     Active Substance: GABAPENTIN
     Dosage: 100 MILLIGRAM, QD (1 EVERY 1 DAYS)
     Route: 048
     Dates: start: 20240826, end: 20250728
  39. GABAPENTIN [Concomitant]
     Active Substance: GABAPENTIN
     Dosage: 100 MILLIGRAM, QD (1 EVERY 1 DAYS)
     Route: 048
     Dates: start: 20240826, end: 20250728
  40. GABAPENTIN [Concomitant]
     Active Substance: GABAPENTIN
     Dosage: 100 MILLIGRAM, QD (1 EVERY 1 DAYS)
     Route: 061
     Dates: start: 20240826, end: 20250728
  41. MAGNESIUM OXIDE [Concomitant]
     Active Substance: MAGNESIUM OXIDE
     Indication: Gastrooesophageal reflux disease
     Dosage: 400 MILLIGRAM, QD (PER DAY)
     Route: 061
     Dates: start: 20200918
  42. MAGNESIUM OXIDE [Concomitant]
     Active Substance: MAGNESIUM OXIDE
     Dosage: 400 MILLIGRAM, QD (PER DAY)
     Route: 048
     Dates: start: 20200918
  43. MAGNESIUM OXIDE [Concomitant]
     Active Substance: MAGNESIUM OXIDE
     Dosage: 400 MILLIGRAM, QD (PER DAY)
     Route: 048
     Dates: start: 20200918
  44. MAGNESIUM OXIDE [Concomitant]
     Active Substance: MAGNESIUM OXIDE
     Dosage: 400 MILLIGRAM, QD (PER DAY)
     Route: 061
     Dates: start: 20200918
  45. METOPROLOL [Concomitant]
     Active Substance: METOPROLOL
     Indication: Essential hypertension
     Dosage: 50 MILLIGRAM, QD (PER DAY)
     Route: 061
     Dates: start: 20210831
  46. METOPROLOL [Concomitant]
     Active Substance: METOPROLOL
     Dosage: 50 MILLIGRAM, QD (PER DAY)
     Route: 048
     Dates: start: 20210831
  47. METOPROLOL [Concomitant]
     Active Substance: METOPROLOL
     Dosage: 50 MILLIGRAM, QD (PER DAY)
     Route: 048
     Dates: start: 20210831
  48. METOPROLOL [Concomitant]
     Active Substance: METOPROLOL
     Dosage: 50 MILLIGRAM, QD (PER DAY)
     Route: 061
     Dates: start: 20210831
  49. NITROGLYCERIN [Concomitant]
     Active Substance: NITROGLYCERIN
     Indication: Angina pectoris
     Dosage: 0.6 MILLIGRAM, PRN (AS NEEDED)
     Route: 061
  50. NITROGLYCERIN [Concomitant]
     Active Substance: NITROGLYCERIN
     Dosage: 0.6 MILLIGRAM, PRN (AS NEEDED)
     Route: 048
  51. NITROGLYCERIN [Concomitant]
     Active Substance: NITROGLYCERIN
     Dosage: 0.6 MILLIGRAM, PRN (AS NEEDED)
     Route: 048
  52. NITROGLYCERIN [Concomitant]
     Active Substance: NITROGLYCERIN
     Dosage: 0.6 MILLIGRAM, PRN (AS NEEDED)
     Route: 061
  53. OMEPRAZOLE [Concomitant]
     Active Substance: OMEPRAZOLE
     Indication: Gastrooesophageal reflux disease
     Dosage: 20 MILLIGRAM, QD (PER DAY)
     Route: 061
     Dates: start: 20220819
  54. OMEPRAZOLE [Concomitant]
     Active Substance: OMEPRAZOLE
     Dosage: 20 MILLIGRAM, QD (PER DAY)
     Route: 048
     Dates: start: 20220819
  55. OMEPRAZOLE [Concomitant]
     Active Substance: OMEPRAZOLE
     Dosage: 20 MILLIGRAM, QD (PER DAY)
     Route: 048
     Dates: start: 20220819
  56. OMEPRAZOLE [Concomitant]
     Active Substance: OMEPRAZOLE
     Dosage: 20 MILLIGRAM, QD (PER DAY)
     Route: 061
     Dates: start: 20220819
  57. RANOLAZINE [Concomitant]
     Active Substance: RANOLAZINE
     Indication: Angina pectoris
     Dosage: 1000 MILLIGRAM, QD (PER DAY)
     Route: 061
     Dates: start: 20210409
  58. RANOLAZINE [Concomitant]
     Active Substance: RANOLAZINE
     Dosage: 1000 MILLIGRAM, QD (PER DAY)
     Route: 048
     Dates: start: 20210409
  59. RANOLAZINE [Concomitant]
     Active Substance: RANOLAZINE
     Dosage: 1000 MILLIGRAM, QD (PER DAY)
     Route: 048
     Dates: start: 20210409
  60. RANOLAZINE [Concomitant]
     Active Substance: RANOLAZINE
     Dosage: 1000 MILLIGRAM, QD (PER DAY)
     Route: 061
     Dates: start: 20210409
  61. REPATHA [Concomitant]
     Active Substance: EVOLOCUMAB
     Indication: Hyperlipidaemia
     Dosage: 140 MILLIGRAM, Q2W (EVERY 14 DAYS)
     Dates: start: 20250327
  62. REPATHA [Concomitant]
     Active Substance: EVOLOCUMAB
     Dosage: 140 MILLIGRAM, Q2W (EVERY 14 DAYS)
     Route: 058
     Dates: start: 20250327
  63. REPATHA [Concomitant]
     Active Substance: EVOLOCUMAB
     Dosage: 140 MILLIGRAM, Q2W (EVERY 14 DAYS)
     Route: 058
     Dates: start: 20250327
  64. REPATHA [Concomitant]
     Active Substance: EVOLOCUMAB
     Dosage: 140 MILLIGRAM, Q2W (EVERY 14 DAYS)
     Dates: start: 20250327
  65. ROSUVASTATIN [Concomitant]
     Active Substance: ROSUVASTATIN
     Indication: Hyperlipidaemia
     Dosage: 40 MILLIGRAM, QD (PER DAY)
     Route: 061
     Dates: start: 20250210
  66. ROSUVASTATIN [Concomitant]
     Active Substance: ROSUVASTATIN
     Dosage: 40 MILLIGRAM, QD (PER DAY)
     Route: 048
     Dates: start: 20250210
  67. ROSUVASTATIN [Concomitant]
     Active Substance: ROSUVASTATIN
     Dosage: 40 MILLIGRAM, QD (PER DAY)
     Route: 048
     Dates: start: 20250210
  68. ROSUVASTATIN [Concomitant]
     Active Substance: ROSUVASTATIN
     Dosage: 40 MILLIGRAM, QD (PER DAY)
     Route: 061
     Dates: start: 20250210
  69. SELENIUM SULFIDE [Concomitant]
     Active Substance: SELENIUM SULFIDE
     Indication: Seborrhoeic dermatitis
     Dosage: UNK, PRN (AS NEEDED)
     Route: 048
  70. SELENIUM SULFIDE [Concomitant]
     Active Substance: SELENIUM SULFIDE
     Dosage: UNK, PRN (AS NEEDED)
     Route: 061
  71. SELENIUM SULFIDE [Concomitant]
     Active Substance: SELENIUM SULFIDE
     Dosage: UNK, PRN (AS NEEDED)
     Route: 061
  72. SELENIUM SULFIDE [Concomitant]
     Active Substance: SELENIUM SULFIDE
     Dosage: UNK, PRN (AS NEEDED)
     Route: 048
  73. SUCRALFATE [Concomitant]
     Active Substance: SUCRALFATE
     Indication: Gastrooesophageal reflux disease
     Dosage: 1 GRAM, QD (PER DAY)
     Route: 061
     Dates: start: 20250724
  74. SUCRALFATE [Concomitant]
     Active Substance: SUCRALFATE
     Dosage: 1 GRAM, QD (PER DAY)
     Route: 048
     Dates: start: 20250724
  75. SUCRALFATE [Concomitant]
     Active Substance: SUCRALFATE
     Dosage: 1 GRAM, QD (PER DAY)
     Route: 048
     Dates: start: 20250724
  76. SUCRALFATE [Concomitant]
     Active Substance: SUCRALFATE
     Dosage: 1 GRAM, QD (PER DAY)
     Route: 061
     Dates: start: 20250724
  77. TRAZODONE [Concomitant]
     Active Substance: TRAZODONE HYDROCHLORIDE
     Indication: Depression
     Dosage: 50 MILLIGRAM, QD (PER DAY)
     Route: 061
     Dates: start: 20250724
  78. TRAZODONE [Concomitant]
     Active Substance: TRAZODONE HYDROCHLORIDE
     Dosage: 50 MILLIGRAM, QD (PER DAY)
     Route: 048
     Dates: start: 20250724
  79. TRAZODONE [Concomitant]
     Active Substance: TRAZODONE HYDROCHLORIDE
     Dosage: 50 MILLIGRAM, QD (PER DAY)
     Route: 048
     Dates: start: 20250724
  80. TRAZODONE [Concomitant]
     Active Substance: TRAZODONE HYDROCHLORIDE
     Dosage: 50 MILLIGRAM, QD (PER DAY)
     Route: 061
     Dates: start: 20250724
  81. FLUTICASONE PROPIONATE\SALMETEROL XINAFOATE [Concomitant]
     Active Substance: FLUTICASONE PROPIONATE\SALMETEROL XINAFOATE
     Indication: Asthma
     Dosage: 50 MICROGRAM, BID (TWICE A DAY)
     Dates: start: 20240508
  82. FLUTICASONE PROPIONATE\SALMETEROL XINAFOATE [Concomitant]
     Active Substance: FLUTICASONE PROPIONATE\SALMETEROL XINAFOATE
     Dosage: 50 MICROGRAM, BID (TWICE A DAY)
     Route: 055
     Dates: start: 20240508
  83. FLUTICASONE PROPIONATE\SALMETEROL XINAFOATE [Concomitant]
     Active Substance: FLUTICASONE PROPIONATE\SALMETEROL XINAFOATE
     Dosage: 50 MICROGRAM, BID (TWICE A DAY)
     Route: 055
     Dates: start: 20240508
  84. FLUTICASONE PROPIONATE\SALMETEROL XINAFOATE [Concomitant]
     Active Substance: FLUTICASONE PROPIONATE\SALMETEROL XINAFOATE
     Dosage: 50 MICROGRAM, BID (TWICE A DAY)
     Dates: start: 20240508
  85. POTASSIUM CHLORIDE [Concomitant]
     Active Substance: POTASSIUM CHLORIDE
     Indication: Supplementation therapy
     Dosage: 10 MILLIEQUIVALENT, QD (PER DAY)
     Route: 061
     Dates: start: 20221230
  86. POTASSIUM CHLORIDE [Concomitant]
     Active Substance: POTASSIUM CHLORIDE
     Dosage: 10 MILLIEQUIVALENT, QD (PER DAY)
     Route: 048
     Dates: start: 20221230
  87. POTASSIUM CHLORIDE [Concomitant]
     Active Substance: POTASSIUM CHLORIDE
     Dosage: 10 MILLIEQUIVALENT, QD (PER DAY)
     Route: 048
     Dates: start: 20221230
  88. POTASSIUM CHLORIDE [Concomitant]
     Active Substance: POTASSIUM CHLORIDE
     Dosage: 10 MILLIEQUIVALENT, QD (PER DAY)
     Route: 061
     Dates: start: 20221230
  89. ASCORBIC ACID [Concomitant]
     Active Substance: ASCORBIC ACID
     Indication: Supplementation therapy
     Dosage: 500 MILLIGRAM, QD (PER DAY)
     Route: 061
     Dates: start: 20200830
  90. ASCORBIC ACID [Concomitant]
     Active Substance: ASCORBIC ACID
     Dosage: 500 MILLIGRAM, QD (PER DAY)
     Route: 048
     Dates: start: 20200830
  91. ASCORBIC ACID [Concomitant]
     Active Substance: ASCORBIC ACID
     Dosage: 500 MILLIGRAM, QD (PER DAY)
     Route: 048
     Dates: start: 20200830
  92. ASCORBIC ACID [Concomitant]
     Active Substance: ASCORBIC ACID
     Dosage: 500 MILLIGRAM, QD (PER DAY)
     Route: 061
     Dates: start: 20200830
  93. VITAMIN B COMPLEX [Concomitant]
     Active Substance: CYANOCOBALAMIN\DEXPANTHENOL\NIACINAMIDE\PYRIDOXINE HYDROCHLORIDE\RIBOFLAVIN 5^-PHOSPHATE SODIUM\THIA
     Indication: Supplementation therapy
     Dosage: 1 DOSAGE FORM, QD (PER DAY)
     Route: 061
     Dates: start: 20200830
  94. VITAMIN B COMPLEX [Concomitant]
     Active Substance: CYANOCOBALAMIN\DEXPANTHENOL\NIACINAMIDE\PYRIDOXINE HYDROCHLORIDE\RIBOFLAVIN 5^-PHOSPHATE SODIUM\THIA
     Dosage: 1 DOSAGE FORM, QD (PER DAY)
     Route: 048
     Dates: start: 20200830
  95. VITAMIN B COMPLEX [Concomitant]
     Active Substance: CYANOCOBALAMIN\DEXPANTHENOL\NIACINAMIDE\PYRIDOXINE HYDROCHLORIDE\RIBOFLAVIN 5^-PHOSPHATE SODIUM\THIA
     Dosage: 1 DOSAGE FORM, QD (PER DAY)
     Route: 048
     Dates: start: 20200830
  96. VITAMIN B COMPLEX [Concomitant]
     Active Substance: CYANOCOBALAMIN\DEXPANTHENOL\NIACINAMIDE\PYRIDOXINE HYDROCHLORIDE\RIBOFLAVIN 5^-PHOSPHATE SODIUM\THIA
     Dosage: 1 DOSAGE FORM, QD (PER DAY)
     Route: 061
     Dates: start: 20200830
  97. VITAMIN E [Concomitant]
     Active Substance: .ALPHA.-TOCOPHEROL
     Indication: Supplementation therapy
     Dosage: 100 DOSAGE FORM, QD (PER DAY)
     Route: 061
     Dates: start: 20200830
  98. VITAMIN E [Concomitant]
     Active Substance: .ALPHA.-TOCOPHEROL
     Dosage: 100 DOSAGE FORM, QD (PER DAY)
     Route: 048
     Dates: start: 20200830
  99. VITAMIN E [Concomitant]
     Active Substance: .ALPHA.-TOCOPHEROL
     Dosage: 100 DOSAGE FORM, QD (PER DAY)
     Route: 048
     Dates: start: 20200830
  100. VITAMIN E [Concomitant]
     Active Substance: .ALPHA.-TOCOPHEROL
     Dosage: 100 DOSAGE FORM, QD (PER DAY)
     Route: 061
     Dates: start: 20200830
  101. NALTREXONE [Concomitant]
     Active Substance: NALTREXONE
     Indication: Alcohol use disorder
     Dosage: UNK
  102. NALTREXONE [Concomitant]
     Active Substance: NALTREXONE
     Indication: Appetite disorder
     Dosage: UNK
     Route: 065
  103. NALTREXONE [Concomitant]
     Active Substance: NALTREXONE
     Dosage: UNK
     Route: 065
  104. NALTREXONE [Concomitant]
     Active Substance: NALTREXONE
     Dosage: UNK
  105. FLOMAX [Concomitant]
     Active Substance: TAMSULOSIN HYDROCHLORIDE
     Dosage: UNK
  106. FLOMAX [Concomitant]
     Active Substance: TAMSULOSIN HYDROCHLORIDE
     Dosage: UNK
     Route: 065
  107. FLOMAX [Concomitant]
     Active Substance: TAMSULOSIN HYDROCHLORIDE
     Dosage: UNK
     Route: 065
  108. FLOMAX [Concomitant]
     Active Substance: TAMSULOSIN HYDROCHLORIDE
     Dosage: UNK

REACTIONS (1)
  - Orthostatic hypotension [Recovered/Resolved]

NARRATIVE: CASE EVENT DATE: 20250806
